FAERS Safety Report 4577564-0 (Version None)
Quarter: 2005Q1

REPORT INFORMATION
  Report Type: 
  Country: None (occurrence: None)
  Receive Date: 20050208
  Receipt Date: 20050128
  Transmission Date: 20050727
  Serious: Yes (Hospitalization)
  Sender: FDA-Public Use
  Company Number: 2005CG00227

PATIENT
  Age: 75 Year
  Sex: Female

DRUGS (4)
  1. MEPIVACAINE [Suspect]
     Indication: LOCAL ANAESTHESIA
     Dosage: 140 MG ONCE RNB
  2. MEPIVACAINE [Suspect]
     Indication: LOCAL ANAESTHESIA
     Dosage: 100 MG ONC IN
  3. MEPIVACAINE [Suspect]
     Indication: LOCAL ANAESTHESIA
     Dosage: 100 MG ONCE IN
  4. LEVOTHYROX [Concomitant]

REACTIONS (7)
  - ANAESTHETIC COMPLICATION [None]
  - CATARACT OPERATION COMPLICATION [None]
  - DRUG TOXICITY [None]
  - EYELID PTOSIS [None]
  - IATROGENIC INJURY [None]
  - MUSCLE INJURY [None]
  - TENDON INJURY [None]
